FAERS Safety Report 14797202 (Version 2)
Quarter: 2019Q2

REPORT INFORMATION
  Report Type: Spontaneous
  Country: NO (occurrence: NO)
  Receive Date: 20180423
  Receipt Date: 20190416
  Transmission Date: 20190711
  Serious: Yes (Hospitalization)
  Sender: FDA-Public Use
  Company Number: NO-ELI_LILLY_AND_COMPANY-NO201804007157

PATIENT
  Sex: Male

DRUGS (14)
  1. ZYPADHERA [Suspect]
     Active Substance: OLANZAPINE PAMOATE
     Indication: SUBSTANCE USE
     Dosage: 300 MG, OTHER, EVERY 14TH DAY
     Route: 030
     Dates: start: 20170911, end: 20171012
  2. ORFIRIL [Suspect]
     Active Substance: VALPROATE SODIUM
     Indication: AGGRESSION
     Dosage: UNK, UNKNOWN
     Route: 065
     Dates: start: 20140722
  3. ZYPREXA [Suspect]
     Active Substance: OLANZAPINE
     Dosage: 10 MG, BID
     Route: 048
  4. STESOLID [Concomitant]
     Active Substance: DIAZEPAM
     Indication: PRODUCT USED FOR UNKNOWN INDICATION
     Dosage: 2 DF, UNKNOWN
     Route: 065
  5. CISORDINOL ACUTARD [Concomitant]
     Active Substance: ZUCLOPENTHIXOL ACETATE
     Indication: PRODUCT USED FOR UNKNOWN INDICATION
     Dosage: UNK, UNKNOWN
     Route: 065
  6. ZYPREXA [Suspect]
     Active Substance: OLANZAPINE
     Indication: PSYCHOTIC DISORDER
     Dosage: 20 MG, BID
     Route: 048
  7. ZYPREXA [Suspect]
     Active Substance: OLANZAPINE
     Dosage: 15 MG, BID
     Route: 048
  8. NYCOPLUS [Concomitant]
     Indication: PRODUCT USED FOR UNKNOWN INDICATION
     Dosage: 3 DF, DAILY
     Route: 065
  9. VALLERGAN [Concomitant]
     Active Substance: TRIMEPRAZINE
     Indication: INSOMNIA
     Dosage: UNK, UNKNOWN
     Route: 065
  10. AKINETON [Concomitant]
     Active Substance: BIPERIDEN HYDROCHLORIDE
     Indication: DYSARTHRIA
     Dosage: UNK, UNKNOWN
     Route: 065
     Dates: start: 20140702
  11. ZYPADHERA [Suspect]
     Active Substance: OLANZAPINE PAMOATE
     Indication: SCHIZOPHRENIA
     Dosage: 210 MG, OTHER, EVERY 14TH DAY
     Route: 030
     Dates: start: 20140814
  12. SEROQUEL [Concomitant]
     Active Substance: QUETIAPINE FUMARATE
     Indication: PRODUCT USED FOR UNKNOWN INDICATION
     Dosage: 50 MG, EACH EVENING
     Route: 065
  13. PARACET                            /00020001/ [Concomitant]
     Active Substance: ACETAMINOPHEN
     Indication: PRODUCT USED FOR UNKNOWN INDICATION
     Dosage: UNK UNK, PRN
     Route: 065
  14. DIVISUN [Concomitant]
     Indication: PRODUCT USED FOR UNKNOWN INDICATION
     Dosage: 1 DF, UNK
     Route: 065

REACTIONS (24)
  - Pain in jaw [Unknown]
  - Antipsychotic drug level increased [Unknown]
  - Condition aggravated [Unknown]
  - Dysarthria [Unknown]
  - Insomnia [Unknown]
  - Prescribed overdose [Unknown]
  - Parkinsonism [Unknown]
  - Mouth swelling [Unknown]
  - Muscle twitching [Unknown]
  - Dyskinesia [Unknown]
  - Salivary hypersecretion [Unknown]
  - Alanine aminotransferase increased [Unknown]
  - Fatigue [Unknown]
  - Nervous system disorder [Unknown]
  - Visual impairment [Unknown]
  - Hypoaesthesia oral [Unknown]
  - Speech disorder [Unknown]
  - Tremor [Unknown]
  - Tardive dyskinesia [Unknown]
  - Swollen tongue [Unknown]
  - Muscle tightness [Unknown]
  - Bradykinesia [Unknown]
  - Vitamin B12 increased [Unknown]
  - Tongue disorder [Unknown]

NARRATIVE: CASE EVENT DATE: 20141104
